FAERS Safety Report 23588472 (Version 1)
Quarter: 2024Q1

REPORT INFORMATION
  Report Type: Spontaneous
  Country: FR (occurrence: FR)
  Receive Date: 20240302
  Receipt Date: 20240302
  Transmission Date: 20240409
  Serious: Yes (Other)
  Sender: FDA-Public Use
  Company Number: None

PATIENT
  Age: 42 Year
  Sex: Female

DRUGS (1)
  1. FLUOROURACIL [Suspect]
     Active Substance: FLUOROURACIL
     Indication: Adenocarcinoma of colon
     Dates: start: 20220713

REACTIONS (2)
  - Extravasation [Recovered/Resolved]
  - Puncture site pain [Recovered/Resolved]

NARRATIVE: CASE EVENT DATE: 20220713
